FAERS Safety Report 8398153-6 (Version None)
Quarter: 2012Q2

REPORT INFORMATION
  Report Type: 
  Country: None (occurrence: None)
  Receive Date: 20120531
  Receipt Date: 20120523
  Transmission Date: 20120825
  Serious: Yes (Life-Threatening)
  Sender: FDA-Public Use
  Company Number: PHHY2012JP044283

PATIENT
  Age: 71 Year
  Sex: Male

DRUGS (3)
  1. OXALIPLATIN [Suspect]
  2. FLUOROURACIL [Suspect]
  3. LEUCOVORIN CALCIUM [Suspect]

REACTIONS (1)
  - NEUTROPENIA [None]
